FAERS Safety Report 5949494-0 (Version None)
Quarter: 2008Q4

REPORT INFORMATION
  Report Type: 
  Country: None (occurrence: None)
  Receive Date: 20081112
  Receipt Date: 20081104
  Transmission Date: 20090506
  Serious: Yes (Hospitalization, Other)
  Sender: FDA-Public Use
  Company Number: PHEH2008US09681

PATIENT
  Sex: Female

DRUGS (1)
  1. METOPROLOL TARTRATE [Suspect]
     Indication: ANTICOAGULANT THERAPY
     Dosage: 25 MG, UNK

REACTIONS (5)
  - ATRIAL FIBRILLATION [None]
  - BEDRIDDEN [None]
  - DIVERTICULITIS [None]
  - DRUG INEFFECTIVE [None]
  - NONSPECIFIC REACTION [None]
